FAERS Safety Report 5476541-5 (Version None)
Quarter: 2007Q3

REPORT INFORMATION
  Report Type: 
  Country: None (occurrence: None)
  Receive Date: 20070926
  Receipt Date: 20061206
  Transmission Date: 20080115
  Serious: Yes (Other)
  Sender: FDA-Public Use
  Company Number: 2006150666

PATIENT
  Age: 51 Year
  Sex: Female
  Weight: 56.6996 kg

DRUGS (2)
  1. ZYRTEC [Suspect]
     Indication: SINUSITIS
     Dosage: 20 MG (20 MG,1 IN 1 D)
     Dates: start: 20040101
  2. REMERON [Concomitant]

REACTIONS (4)
  - ACTIVITIES OF DAILY LIVING IMPAIRED [None]
  - BLINDNESS [None]
  - DRY EYE [None]
  - EYE PAIN [None]
